FAERS Safety Report 4285302-4 (Version None)
Quarter: 2004Q1

REPORT INFORMATION
  Report Type: 
  Country: None (occurrence: None)
  Receive Date: 20040204
  Receipt Date: 20040126
  Transmission Date: 20041129
  Serious: Yes (Hospitalization)
  Sender: FDA-Public Use
  Company Number: PHBS2004JP01482

PATIENT
  Age: 69 Year
  Sex: Female

DRUGS (5)
  1. GLEEVEC [Suspect]
     Indication: CHRONIC MYELOID LEUKAEMIA
     Dosage: 300 TO 400 MG/D
     Route: 048
     Dates: start: 20031009, end: 20040106
  2. ARTIST [Concomitant]
     Dosage: 2.5 MG/D
     Route: 048
     Dates: start: 20040106, end: 20040114
  3. THYRADIN S [Concomitant]
     Dosage: 100 MG/D
     Route: 048
     Dates: start: 20031119
  4. ALLELOCK [Concomitant]
     Dosage: 5 MG/D
     Route: 065
  5. TORSEMIDE [Concomitant]
     Dosage: 4 MG/D
     Route: 048
     Dates: start: 20031118, end: 20040114

REACTIONS (5)
  - BLOOD CREATINE PHOSPHOKINASE INCREASED [None]
  - CARDIAC FAILURE [None]
  - LEUKOPENIA [None]
  - MYOGLOBINURIA [None]
  - RHABDOMYOLYSIS [None]
